FAERS Safety Report 22083744 (Version 1)
Quarter: 2023Q1

REPORT INFORMATION
  Report Type: Spontaneous
  Country: US (occurrence: US)
  Receive Date: 20230310
  Receipt Date: 20230310
  Transmission Date: 20230418
  Serious: Yes (Hospitalization, Other)
  Sender: FDA-Public Use
  Company Number: US-MYLANLABS-2023M1025525

PATIENT
  Age: 76 Year
  Sex: Male

DRUGS (7)
  1. TACROLIMUS [Interacting]
     Active Substance: TACROLIMUS
     Indication: Immunosuppressant drug therapy
     Dosage: UNK
     Route: 065
  2. TACROLIMUS [Interacting]
     Active Substance: TACROLIMUS
     Dosage: DOSE REDUCED
     Route: 065
  3. MYCOPHENOLATE MOFETIL [Suspect]
     Active Substance: MYCOPHENOLATE MOFETIL
     Indication: Immunosuppressant drug therapy
     Dosage: UNK
     Route: 065
  4. PREDNISONE [Suspect]
     Active Substance: PREDNISONE
     Indication: Immunosuppressant drug therapy
     Dosage: UNK
     Route: 065
  5. AMPHOTERICIN B [Interacting]
     Active Substance: AMPHOTERICIN B
     Indication: Evidence based treatment
     Dosage: UNK
     Route: 065
  6. MUPIROCIN [Concomitant]
     Active Substance: MUPIROCIN
     Indication: Evidence based treatment
     Dosage: UNK
     Route: 065
  7. CEPHALEXIN [Concomitant]
     Active Substance: CEPHALEXIN
     Indication: Evidence based treatment
     Dosage: UNK
     Route: 065

REACTIONS (3)
  - Cutaneous sporotrichosis [Recovered/Resolved]
  - Drug level decreased [Unknown]
  - Drug interaction [Unknown]
